FAERS Safety Report 8463273-4 (Version None)
Quarter: 2012Q2

REPORT INFORMATION
  Report Type: 
  Country: None (occurrence: None)
  Receive Date: 20120625
  Receipt Date: 20120616
  Transmission Date: 20120825
  Serious: Yes (Hospitalization)
  Sender: FDA-Public Use
  Company Number: TR-ALEXION PHARMACEUTICALS INC.-A201201209

PATIENT
  Age: 25 Year
  Sex: Female

DRUGS (3)
  1. SOLIRIS [Suspect]
     Indication: PAROXYSMAL NOCTURNAL HAEMOGLOBINURIA
     Dosage: 900 MG, EVERY 15 DAYS
     Route: 042
  2. SOLIRIS [Suspect]
     Indication: THROMBOSIS
  3. SOLIRIS [Suspect]
     Indication: BLOOD PRODUCT TRANSFUSION DEPENDENT

REACTIONS (4)
  - LARYNGEAL OEDEMA [None]
  - FLUSHING [None]
  - LARYNGOSPASM [None]
  - DYSPNOEA [None]
